FAERS Safety Report 10700429 (Version 1)
Quarter: 2014Q4

REPORT INFORMATION
  Report Type: Spontaneous
  Country: US (occurrence: None)
  Receive Date: 20141224
  Receipt Date: 20141224
  Transmission Date: 20150529
  Serious: No
  Sender: FDA-Public Use
  Company Number: CABO-14004749

PATIENT
  Age: 58 Year
  Sex: Male

DRUGS (5)
  1. XGEVA [Concomitant]
     Active Substance: DENOSUMAB
  2. COMETRIQ [Suspect]
     Active Substance: CABOZANTINIB S-MALATE
     Indication: PROSTATE CANCER
     Route: 048
     Dates: start: 20140911
  3. METOPROLOL [Concomitant]
     Active Substance: METOPROLOL
  4. LUPRON (PEUPRORELIN ACETATE) [Concomitant]
  5. LOSARTIN (LOSARTAN POTASSIUM) [Concomitant]

REACTIONS (9)
  - Flatulence [None]
  - Pain in extremity [None]
  - Abdominal discomfort [None]
  - Drug ineffective for unapproved indication [None]
  - Bone pain [None]
  - Hypertension [None]
  - Off label use [None]
  - Blood pressure increased [None]
  - Diarrhoea [None]
